FAERS Safety Report 7064815 (Version 2)
Quarter: 2014Q3

REPORT INFORMATION
  Report Type: Spontaneous
  Country: US (occurrence: None)
  Receive Date: 20090720
  Receipt Date: 20140910
  Transmission Date: 20150326
  Serious: Yes (Death, Hospitalization, Other)
  Sender: FDA-Public Use
  Company Number: 2009S1005562

PATIENT
  Age: 73 Year
  Sex: Male

DRUGS (20)
  1. B-12 (CYANOCOBALAMIN) [Concomitant]
  2. ADVAIR DISKUS [Concomitant]
     Active Substance: FLUTICASONE PROPIONATE\SALMETEROL XINAFOATE
  3. ALBUTEROL (SALBUTAMOL SULFATE) [Concomitant]
  4. COUMADIN [Concomitant]
     Active Substance: WARFARIN SODIUM
  5. GLIPIZIDE. [Concomitant]
     Active Substance: GLIPIZIDE
  6. ANTIVERT (NICOTINIC ACID, MECLOZINE HYDROCHLORIDE) [Concomitant]
  7. ERGOCALCIFEROL. [Concomitant]
     Active Substance: ERGOCALCIFEROL
  8. VICODIN (PARACETAMOL, HYDROCODONE BITARTARTE) [Concomitant]
  9. CARDIZEM (DILTIAZEM) [Concomitant]
  10. COLCHICINE. [Concomitant]
     Active Substance: COLCHICINE
  11. LASIX [Concomitant]
     Active Substance: FUROSEMIDE
  12. ZESTRIL (LISINOPRIL) [Concomitant]
  13. VITAMIN-D (COLECALCIFEROL) [Concomitant]
  14. POTASSIUM CHLORIDE. [Concomitant]
     Active Substance: POTASSIUM CHLORIDE
  15. SPIRONOLACTONE. [Concomitant]
     Active Substance: SPIRONOLACTONE
  16. DILANTIN (PHENYTOIN) [Concomitant]
  17. LANOXIN [Concomitant]
     Active Substance: DIGOXIN
  18. ZAROXOLYN (METOLAZONE) [Concomitant]
  19. PHOSPHO-SODA [Suspect]
     Active Substance: SODIUM PHOSPHATE, DIBASIC\SODIUM PHOSPHATE, MONOBASIC
     Indication: COLONOSCOPY
     Dosage: 2 IN 1 DAY
     Route: 048
     Dates: start: 20080330, end: 20080330
  20. COREG [Concomitant]
     Active Substance: CARVEDILOL

REACTIONS (11)
  - Renal failure [None]
  - Diverticulum [None]
  - Bradycardia [None]
  - Extrasystoles [None]
  - Arrhythmia [None]
  - Hypertensive cardiomyopathy [None]
  - Ventricular tachycardia [None]
  - Cardiac arrest [None]
  - Atrial fibrillation [None]
  - Infarction [None]
  - Stress [None]

NARRATIVE: CASE EVENT DATE: 20080402
